FAERS Safety Report 13508918 (Version 2)
Quarter: 2017Q2

REPORT INFORMATION
  Report Type: Report from Study
  Country: IT (occurrence: IT)
  Receive Date: 20170503
  Receipt Date: 20170507
  Transmission Date: 20170830
  Serious: Yes (Other)
  Sender: FDA-Public Use
  Company Number: IT-TEVA-763448ACC

PATIENT
  Age: 56 Year
  Sex: Male

DRUGS (2)
  1. RAMIPRIL. [Suspect]
     Active Substance: RAMIPRIL
     Indication: DRUG USE DISORDER
     Route: 048
     Dates: start: 20170225, end: 20170225
  2. NORVASC [Suspect]
     Active Substance: AMLODIPINE BESYLATE
     Indication: DRUG USE DISORDER
     Route: 048
     Dates: start: 20170225, end: 20170225

REACTIONS (3)
  - Drug use disorder [Recovering/Resolving]
  - Sopor [Recovering/Resolving]
  - Poisoning [Recovering/Resolving]

NARRATIVE: CASE EVENT DATE: 20170225
